FAERS Safety Report 6638009-X (Version None)
Quarter: 2010Q1

REPORT INFORMATION
  Report Type: 
  Country: None (occurrence: None)
  Receive Date: 20100317
  Receipt Date: 20100308
  Transmission Date: 20100710
  Serious: Yes (Hospitalization)
  Sender: FDA-Public Use
  Company Number: GR-SANOFI-AVENTIS-2010SA013232

PATIENT
  Age: 35 Year
  Sex: Female

DRUGS (1)
  1. STILNOX [Suspect]
     Indication: OFF LABEL USE
     Route: 048

REACTIONS (4)
  - AMNESIA [None]
  - DIZZINESS [None]
  - OFF LABEL USE [None]
  - VICTIM OF SEXUAL ABUSE [None]
